FAERS Safety Report 9305731 (Version 1)
Quarter: 2013Q2

REPORT INFORMATION
  Report Type: Spontaneous
  Country: US (occurrence: None)
  Receive Date: 20130522
  Receipt Date: 20130522
  Transmission Date: 20140414
  Serious: Yes (Other)
  Sender: FDA-Public Use
  Company Number: None

PATIENT
  Age: 48 Year
  Sex: Female

DRUGS (2)
  1. OLANZAPINE [Suspect]
     Indication: BIPOLAR DISORDER
     Dosage: 1 @ AM 2 Q PM PD
  2. OLANZAPINE [Suspect]
     Indication: ANXIETY
     Dosage: 1 @ AM 2 Q PM PD

REACTIONS (1)
  - Night sweats [None]
